FAERS Safety Report 5519210-5 (Version None)
Quarter: 2007Q4

REPORT INFORMATION
  Report Type: 
  Country: None (occurrence: None)
  Receive Date: 20071114
  Receipt Date: 20071114
  Transmission Date: 20080405
  Serious: Yes (Death)
  Sender: FDA-Public Use
  Company Number: None

PATIENT
  Age: 52 Year
  Sex: Male
  Weight: 43.5453 kg

DRUGS (4)
  1. LAMIVUDINE + ZIDOVUDINE [Suspect]
     Indication: HIV INFECTION
     Dosage: 1 TABLET TWICE DAILY PO
     Route: 048
     Dates: start: 20061218, end: 20071019
  2. EFAVIRENZ [Suspect]
     Indication: HIV INFECTION
     Dosage: 1 TABLET AT BED TIME PO
     Route: 048
     Dates: start: 20061218, end: 20071019
  3. MULTIPLE VITAMIN [Concomitant]
  4. BACTRIM [Concomitant]

REACTIONS (5)
  - APHASIA [None]
  - FALL [None]
  - MALAISE [None]
  - NECK PAIN [None]
  - PAIN [None]
